FAERS Safety Report 4326751-5 (Version None)
Quarter: 2004Q1

REPORT INFORMATION
  Report Type: 
  Country: None (occurrence: None)
  Receive Date: 20040322
  Receipt Date: 20031230
  Transmission Date: 20041129
  Serious: No
  Sender: FDA-Public Use
  Company Number: US-JNJFOC-20040100075

PATIENT
  Sex: Female
  Weight: 52.6173 kg

DRUGS (2)
  1. ORTHO TRI-CYCLEN LO [Suspect]
     Indication: CONTRACEPTION
     Dosage: 1 DOSE (S), 1 IN 1 DAY, ORAL
  2. SPIRONOLACTONE [Concomitant]

REACTIONS (3)
  - BREAST ENGORGEMENT [None]
  - BREAST PAIN [None]
  - HYPERTROPHY BREAST [None]
